FAERS Safety Report 24848448 (Version 2)
Quarter: 2025Q1

REPORT INFORMATION
  Report Type: Spontaneous
  Country: CA (occurrence: CA)
  Receive Date: 20250116
  Receipt Date: 20250129
  Transmission Date: 20250409
  Serious: Yes (Other)
  Sender: SANOFI AVENTIS
  Company Number: CA-SANOFI-02366126

PATIENT
  Age: 47 Year
  Sex: Male

DRUGS (14)
  1. LEMTRADA [Suspect]
     Active Substance: ALEMTUZUMAB
     Indication: Multiple sclerosis
     Route: 042
     Dates: start: 20200120, end: 20200124
  2. LEMTRADA [Suspect]
     Active Substance: ALEMTUZUMAB
     Route: 042
     Dates: start: 20210203, end: 20210205
  3. OCREVUS [Concomitant]
     Active Substance: OCRELIZUMAB
     Indication: Multiple sclerosis
  4. VITAMIN D [Concomitant]
     Active Substance: VITAMIN D NOS
  5. AZITHROMYCIN [Concomitant]
     Active Substance: AZITHROMYCIN
     Indication: Toothache
  6. ADVIL [Concomitant]
     Active Substance: IBUPROFEN
     Indication: Pain
  7. ADVIL [Concomitant]
     Active Substance: IBUPROFEN
     Indication: Pyrexia
  8. ADVIL [Concomitant]
     Active Substance: IBUPROFEN
     Indication: Nasopharyngitis
  9. TYLENOL [Concomitant]
     Active Substance: ACETAMINOPHEN
     Indication: Pain
  10. TYLENOL [Concomitant]
     Active Substance: ACETAMINOPHEN
     Indication: Pyrexia
  11. TYLENOL [Concomitant]
     Active Substance: ACETAMINOPHEN
     Indication: Nasopharyngitis
  12. RANITIDINE [Concomitant]
     Active Substance: RANITIDINE
  13. ACYCLOVIR [Concomitant]
     Active Substance: ACYCLOVIR
  14. ZOPICLONE [Concomitant]
     Active Substance: ZOPICLONE

REACTIONS (5)
  - Type 1 diabetes mellitus [Unknown]
  - Blood glucose increased [Not Recovered/Not Resolved]
  - Glucose urine present [Unknown]
  - Blood pressure abnormal [Unknown]
  - Thyroid disorder [Unknown]

NARRATIVE: CASE EVENT DATE: 20221101
